FAERS Safety Report 12993248 (Version 1)
Quarter: 2016Q4

REPORT INFORMATION
  Report Type: Spontaneous
  Country: CA (occurrence: US)
  Receive Date: 20161201
  Receipt Date: 20161201
  Transmission Date: 20170207
  Serious: Yes (Hospitalization)
  Sender: FDA-Public Use
  Company Number: None

PATIENT
  Age: 75 Year
  Sex: Male
  Weight: 75 kg

DRUGS (3)
  1. XARELTO [Concomitant]
     Active Substance: RIVAROXABAN
  2. CASODEX [Suspect]
     Active Substance: BICALUTAMIDE
     Dates: end: 20160328
  3. LEUPROLIDE ACETATE. [Suspect]
     Active Substance: LEUPROLIDE ACETATE
     Dates: end: 20160104

REACTIONS (2)
  - Rectal haemorrhage [None]
  - Radiation proctitis [None]

NARRATIVE: CASE EVENT DATE: 20160619
